FAERS Safety Report 15460584 (Version 3)
Quarter: 2020Q3

REPORT INFORMATION
  Report Type: Report from Study
  Country: GB (occurrence: GB)
  Receive Date: 20181003
  Receipt Date: 20181016
  Transmission Date: 20201104
  Serious: Yes (Other)
  Sender: FDA-Public Use
  Company Number: GB-JNJFOC-20181001632

PATIENT
  Age: 53 Year
  Sex: Male

DRUGS (8)
  1. DEXAMETHASONE. [Concomitant]
     Active Substance: DEXAMETHASONE
     Indication: PROPHYLAXIS OF NAUSEA AND VOMITING
     Route: 048
     Dates: start: 20180125
  2. TRANEXAMIC ACID C [Concomitant]
     Active Substance: TRANEXAMIC ACID
     Indication: ANAEMIA
     Route: 048
     Dates: start: 20180214, end: 20180521
  3. LOPERAMIDE [Concomitant]
     Active Substance: LOPERAMIDE
     Indication: NAUSEA
     Route: 048
     Dates: start: 20180125
  4. DOMPERIDONE [Concomitant]
     Active Substance: DOMPERIDONE
     Indication: NAUSEA
     Route: 048
     Dates: start: 20180125
  5. IBRUTINIB [Suspect]
     Active Substance: IBRUTINIB
     Indication: GASTRIC CANCER
     Route: 048
     Dates: start: 20180125, end: 20180519
  6. IBRUTINIB [Suspect]
     Active Substance: IBRUTINIB
     Indication: GASTRIC CANCER
     Route: 048
     Dates: start: 20180529
  7. DOCETAXEL. [Suspect]
     Active Substance: DOCETAXEL
     Indication: GASTRIC CANCER
     Route: 042
     Dates: start: 20180125
  8. OMEPRAZOLE. [Concomitant]
     Active Substance: OMEPRAZOLE
     Indication: GASTROINTESTINAL DISORDER THERAPY
     Route: 048
     Dates: start: 20170111

REACTIONS (1)
  - Gastrointestinal haemorrhage [Recovered/Resolved]

NARRATIVE: CASE EVENT DATE: 20180519
